FAERS Safety Report 5731121-9 (Version None)
Quarter: 2008Q2

REPORT INFORMATION
  Report Type: 
  Country: None (occurrence: None)
  Receive Date: 20080505
  Receipt Date: 20080428
  Transmission Date: 20081010
  Serious: Yes (Other)
  Sender: FDA-Public Use
  Company Number: 75320

PATIENT
  Age: 41 Year
  Sex: Female
  Weight: 107.0489 kg

DRUGS (11)
  1. ASPIRIN [Suspect]
     Dosage: 81 MG/ DAILY/ ORALLY
     Route: 048
     Dates: start: 20060101
  2. LISINOPRIL [Suspect]
     Indication: HYPERTENSION
     Dosage: 10 MG/ DAILY/ ORALLY
     Route: 048
     Dates: start: 20060101
  3. DILTIAZEM HCL 90 MG [Concomitant]
  4. AZMACORT 75 MG [Concomitant]
  5. RUBITUSSIN ALLERGY/COUGH [Concomitant]
  6. LOTRISONE [Concomitant]
  7. SPIRONOLACTONE [Concomitant]
  8. ZOCOR [Concomitant]
  9. ALBUTEROL [Concomitant]
  10. REFRESH OPTHALMIC OINT AND TEARS [Concomitant]
  11. OXYGEN [Concomitant]

REACTIONS (5)
  - ASTHENIA [None]
  - CARDIO-RESPIRATORY ARREST [None]
  - NEPHROSCLEROSIS [None]
  - RENAL ARTERY STENOSIS [None]
  - RENAL FAILURE CHRONIC [None]
